FAERS Safety Report 23633152 (Version 1)
Quarter: 2024Q1

REPORT INFORMATION
  Report Type: Spontaneous
  Country: US (occurrence: None)
  Receive Date: 20240314
  Receipt Date: 20240314
  Transmission Date: 20240410
  Serious: Yes (Hospitalization)
  Sender: FDA-Public Use
  Company Number: None

PATIENT
  Age: 61 Year
  Sex: Male
  Weight: 92.2 kg

DRUGS (1)
  1. CISPLATIN [Suspect]
     Active Substance: CISPLATIN
     Dates: end: 20230918

REACTIONS (15)
  - Haematemesis [None]
  - Syncope [None]
  - Cough [None]
  - Nausea [None]
  - Haematemesis [None]
  - Loss of consciousness [None]
  - Skin laceration [None]
  - Skin laceration [None]
  - Decreased appetite [None]
  - Odynophagia [None]
  - Dysphonia [None]
  - Dry mouth [None]
  - Upper gastrointestinal haemorrhage [None]
  - Oesophagitis [None]
  - Hypophagia [None]

NARRATIVE: CASE EVENT DATE: 20230925
